FAERS Safety Report 24264125 (Version 1)
Quarter: 2024Q3

REPORT INFORMATION
  Report Type: Spontaneous
  Country: US (occurrence: US)
  Receive Date: 20240829
  Receipt Date: 20240829
  Transmission Date: 20241017
  Serious: Yes (Other)
  Sender: AMGEN
  Company Number: US-AMGEN-USASP2024167747

PATIENT
  Age: 27 Year
  Sex: Female

DRUGS (3)
  1. PREDNISONE [Suspect]
     Active Substance: PREDNISONE
     Indication: Chronic lymphocytic inflammation with pontine perivascular enhancement responsive to steroids
     Dosage: 80 MILLIGRAM (TAPER OVER 8 MONTHS)
     Route: 065
  2. METHYLPREDNISOLONE [Concomitant]
     Active Substance: METHYLPREDNISOLONE
     Indication: Chronic lymphocytic inflammation with pontine perivascular enhancement responsive to steroids
     Dosage: 1 GRAM (FOR 5 DAYS)
     Route: 065
  3. COBIMETINIB [Concomitant]
     Active Substance: COBIMETINIB
     Indication: Chronic lymphocytic inflammation with pontine perivascular enhancement responsive to steroids
     Dosage: 60 MILLIGRAM (21 DAYS ON, 7DAYS OFF FOR 1 YEAR)

REACTIONS (3)
  - Erdheim-Chester disease [Unknown]
  - Drug ineffective for unapproved indication [Unknown]
  - Off label use [Unknown]
